FAERS Safety Report 7670108-6 (Version None)
Quarter: 2011Q3

REPORT INFORMATION
  Report Type: 
  Country: None (occurrence: None)
  Receive Date: 20110808
  Receipt Date: 20110728
  Transmission Date: 20111222
  Serious: Yes (Other)
  Sender: FDA-Public Use
  Company Number: US-ASTRAZENECA-2011SE45202

PATIENT
  Age: 75 Year
  Sex: Female
  Weight: 72.6 kg

DRUGS (3)
  1. SYMBICORT [Suspect]
     Indication: ASTHMA
     Dosage: 640 MCGS DAILY
     Route: 055
     Dates: start: 20110301
  2. HYDROCORTISONE [Concomitant]
  3. THYROID TAB [Concomitant]

REACTIONS (2)
  - PITUITARY TUMOUR [None]
  - MUSCLE SPASMS [None]
